FAERS Safety Report 11538637 (Version 3)
Quarter: 2015Q4

REPORT INFORMATION
  Report Type: Report from Study
  Country: US (occurrence: US)
  Receive Date: 20150923
  Receipt Date: 20151008
  Transmission Date: 20160304
  Serious: No
  Sender: FDA-Public Use
  Company Number: US-AMGEN-USASP2015097138

PATIENT
  Age: 74 Year
  Sex: Male

DRUGS (1)
  1. ENBREL [Suspect]
     Active Substance: ETANERCEPT
     Indication: RHEUMATOID ARTHRITIS
     Dosage: 50 MG, QWK
     Route: 065

REACTIONS (11)
  - Pain [Not Recovered/Not Resolved]
  - Pain in extremity [Not Recovered/Not Resolved]
  - Movement disorder [Unknown]
  - Arthralgia [Unknown]
  - Injection site pain [Unknown]
  - Injection site discomfort [Unknown]
  - Hypoaesthesia [Unknown]
  - Device issue [Unknown]
  - Gait disturbance [Unknown]
  - Injection site hypoaesthesia [Unknown]
  - Muscle spasms [Unknown]

NARRATIVE: CASE EVENT DATE: 201509
